FAERS Safety Report 14983217 (Version 1)
Quarter: 2018Q2

REPORT INFORMATION
  Report Type: Spontaneous
  Country: US (occurrence: US)
  Receive Date: 20180517
  Receipt Date: 20180517
  Transmission Date: 20180711
  Serious: Yes (Hospitalization)
  Sender: FDA-Public Use
  Company Number: None

PATIENT
  Sex: Female

DRUGS (17)
  1. CALCIUM 600 [Concomitant]
  2. TYLENOL [Concomitant]
     Active Substance: ACETAMINOPHEN
  3. SALSALATE. [Concomitant]
     Active Substance: SALSALATE
  4. FOLIC ACID. [Concomitant]
     Active Substance: FOLIC ACID
  5. PREDNISONE. [Concomitant]
     Active Substance: PREDNISONE
  6. GABAPENTIN. [Concomitant]
     Active Substance: GABAPENTIN
  7. DULOXETINE. [Concomitant]
     Active Substance: DULOXETINE
  8. CLARITIN [Concomitant]
     Active Substance: LORATADINE
  9. ZIPRASIDONE. [Concomitant]
     Active Substance: ZIPRASIDONE
  10. PRAZOSIN. [Concomitant]
     Active Substance: PRAZOSIN
  11. METHOTREXATE. [Concomitant]
     Active Substance: METHOTREXATE
  12. XANAX XR [Concomitant]
     Active Substance: ALPRAZOLAM
  13. LAMATRIGINE [Concomitant]
     Active Substance: LAMOTRIGINE
  14. ENERGY B-12 [Concomitant]
  15. HYDROXYCHLOR [Concomitant]
     Active Substance: HYDROXYCHLOROQUINE
  16. XELJANZ [Suspect]
     Active Substance: TOFACITINIB CITRATE
     Indication: RHEUMATOID ARTHRITIS
     Route: 048
     Dates: start: 20170428
  17. LISINOPRIL. [Concomitant]
     Active Substance: LISINOPRIL

REACTIONS (4)
  - Asthenia [None]
  - Rheumatoid arthritis [None]
  - Fatigue [None]
  - Drug dose omission [None]
